FAERS Safety Report 4400181-X (Version None)
Quarter: 2004Q3

REPORT INFORMATION
  Report Type: 
  Country: None (occurrence: None)
  Receive Date: 20040716
  Receipt Date: 20040628
  Transmission Date: 20050211
  Serious: Yes (Hospitalization)
  Sender: FDA-Public Use
  Company Number: USA040568733

PATIENT
  Age: 79 Year
  Sex: Male

DRUGS (1)
  1. FORTEO [Suspect]
     Indication: OSTEOPOROSIS
     Dates: start: 20031101

REACTIONS (3)
  - FINGER AMPUTATION [None]
  - LIMB TRAUMATIC AMPUTATION [None]
  - PHARMACEUTICAL PRODUCT COMPLAINT [None]
